FAERS Safety Report 17539497 (Version 1)
Quarter: 2020Q1

REPORT INFORMATION
  Report Type: Spontaneous
  Country: US (occurrence: US)
  Receive Date: 20200313
  Receipt Date: 20200313
  Transmission Date: 20200409
  Serious: No
  Sender: FDA-Public Use
  Company Number: US-PFIZER INC-2019198173

PATIENT
  Age: 36 Year
  Sex: Female
  Weight: 130.1 kg

DRUGS (1)
  1. ELETRIPTAN HBR [Suspect]
     Active Substance: ELETRIPTAN HYDROBROMIDE
     Indication: MIGRAINE
     Dosage: 40 MG, TAKE ONE THEN TWO HOURS LATER TAKE ANOTHER ONE, NO MORE THAN 4 A WEEK
     Route: 048
     Dates: start: 2019, end: 2020

REACTIONS (2)
  - Expired product administered [Unknown]
  - Drug ineffective [Not Recovered/Not Resolved]

NARRATIVE: CASE EVENT DATE: 2019
